FAERS Safety Report 14361487 (Version 6)
Quarter: 2018Q3

REPORT INFORMATION
  Report Type: Spontaneous
  Country: US (occurrence: US)
  Receive Date: 20180108
  Receipt Date: 20180920
  Transmission Date: 20181010
  Serious: No
  Sender: FDA-Public Use
  Company Number: US-BRISTOL-MYERS SQUIBB COMPANY-BMS-2018-000723

PATIENT
  Sex: Female
  Weight: 108.84 kg

DRUGS (1)
  1. ORENCIA [Suspect]
     Active Substance: ABATACEPT
     Indication: RHEUMATOID ARTHRITIS
     Dosage: 125 MG, QWK
     Route: 058
     Dates: start: 201709

REACTIONS (9)
  - Pain [Unknown]
  - Muscle spasms [Unknown]
  - Needle issue [Unknown]
  - Musculoskeletal stiffness [Unknown]
  - Drug ineffective [Unknown]
  - Adverse event [Unknown]
  - General physical health deterioration [Unknown]
  - Myalgia [Unknown]
  - Joint swelling [Unknown]
